FAERS Safety Report 10019439 (Version 2)
Quarter: 2014Q1

REPORT INFORMATION
  Report Type: Report from Study
  Country: US (occurrence: US)
  Receive Date: 20140318
  Receipt Date: 20140325
  Transmission Date: 20141002
  Serious: Yes (Hospitalization)
  Sender: FDA-Public Use
  Company Number: US-BAXTER-2014BAX013565

PATIENT
  Age: 16 Year
  Sex: Female

DRUGS (2)
  1. GAMMAGARD LIQUID [Suspect]
     Indication: PRIMARY IMMUNODEFICIENCY SYNDROME
     Route: 042
     Dates: start: 201301, end: 201304
  2. GAMMAGARD LIQUID [Suspect]
     Dosage: 130 GRAMS TOTAL INFUSED OVER FIVE DAYS EVERY WEEK
     Route: 042
     Dates: start: 201305, end: 201310

REACTIONS (1)
  - Encephalitis autoimmune [Not Recovered/Not Resolved]
